FAERS Safety Report 6518857-7 (Version None)
Quarter: 2009Q4

REPORT INFORMATION
  Report Type: 
  Country: None (occurrence: None)
  Receive Date: 20091228
  Receipt Date: 20091217
  Transmission Date: 20100525
  Serious: Yes (Other)
  Sender: FDA-Public Use
  Company Number: US-ASTRAZENECA-2009SE14085

PATIENT
  Age: 29 Year
  Sex: Male

DRUGS (6)
  1. ARIMIDEX [Suspect]
     Indication: BLOOD TESTOSTERONE DECREASED
     Route: 048
     Dates: start: 20090501, end: 20090801
  2. ARIMIDEX [Suspect]
     Indication: NIPPLE PAIN
     Route: 048
     Dates: start: 20090501, end: 20090801
  3. SEROQUEL [Concomitant]
     Indication: SLEEP DISORDER
     Dates: start: 20080101, end: 20080101
  4. METHADONE HYDROCHLORIDE [Concomitant]
     Indication: BACK PAIN
  5. DEMEROL [Concomitant]
     Indication: BACK PAIN
  6. VALIUM [Concomitant]

REACTIONS (9)
  - AMMONIA INCREASED [None]
  - AMNESIA [None]
  - APHASIA [None]
  - CONFUSIONAL STATE [None]
  - DISORIENTATION [None]
  - ERECTILE DYSFUNCTION [None]
  - LIBIDO DECREASED [None]
  - LYMPHADENOPATHY [None]
  - SLEEP DISORDER [None]
